FAERS Safety Report 7861296-7 (Version None)
Quarter: 2011Q4

REPORT INFORMATION
  Report Type: 
  Country: None (occurrence: None)
  Receive Date: 20111027
  Receipt Date: 20111017
  Transmission Date: 20120403
  Serious: Yes (Other)
  Sender: FDA-Public Use
  Company Number: PHFR2011GB05979

PATIENT
  Age: 65 Year
  Sex: Male
  Weight: 74.4 kg

DRUGS (9)
  1. DICLOFENAC POTASSIUM [Suspect]
     Indication: ARTHRITIS
     Dosage: 150 MG, QD
     Route: 048
     Dates: start: 20090801, end: 20110810
  2. CITALOPRAM HYDROBROMIDE [Concomitant]
     Indication: ANXIETY
     Dosage: 20 MG, QD
     Route: 048
  3. FYBOGEL [Concomitant]
  4. ACETAMINOPHEN [Concomitant]
  5. GABAPENTIN [Concomitant]
  6. OMEPRAZOLE [Suspect]
     Indication: DYSPEPSIA
     Dosage: 20 MG, QD
     Route: 048
     Dates: start: 20090801, end: 20110810
  7. CODEINE SULFATE [Concomitant]
  8. MOVIPREP [Concomitant]
  9. NORTRIPTYLINE HCL [Concomitant]

REACTIONS (2)
  - VITAMIN B12 DECREASED [None]
  - BLOOD COUNT ABNORMAL [None]
